FAERS Safety Report 5976474-1 (Version None)
Quarter: 2008Q4

REPORT INFORMATION
  Report Type: 
  Country: None (occurrence: None)
  Receive Date: 20081126
  Receipt Date: 20081114
  Transmission Date: 20090506
  Serious: Yes (Hospitalization)
  Sender: FDA-Public Use
  Company Number: 2008002520

PATIENT
  Age: 78 Year
  Sex: Male
  Weight: 86 kg

DRUGS (10)
  1. ERLOTINIB(ERLOTINIB HCL)(TABLET)(ERLOTINIB HCL) [Suspect]
     Indication: RENAL CELL CARCINOMA
     Dosage: (125 MG,QD), ORAL
     Route: 048
     Dates: start: 20080530, end: 20080617
  2. SUO11248 [Suspect]
     Indication: RENAL CELL CARCINOMA
     Dosage: (37.5 MG, QD) ,ORAL
     Route: 048
     Dates: start: 20080530, end: 20080617
  3. ASPIRIN [Concomitant]
  4. LIPITOR [Concomitant]
  5. LASIX [Concomitant]
  6. POTASSIUM CHLORIDE [Concomitant]
  7. PLAVIX [Concomitant]
  8. TOPROL-XL [Concomitant]
  9. FOLIC ACID [Concomitant]
  10. DOCUSATE SODIUM (DOCUSATE SODIUM) [Concomitant]

REACTIONS (10)
  - BLOOD CREATININE INCREASED [None]
  - BLOOD POTASSIUM DECREASED [None]
  - BLOOD UREA INCREASED [None]
  - NAUSEA [None]
  - PNEUMONIA [None]
  - PROTEIN TOTAL DECREASED [None]
  - RASH [None]
  - SCLERAL HYPERAEMIA [None]
  - VENTRICULAR TACHYCARDIA [None]
  - VOMITING [None]
